FAERS Safety Report 7315804-5 (Version None)
Quarter: 2011Q1

REPORT INFORMATION
  Report Type: 
  Country: None (occurrence: None)
  Receive Date: 20110225
  Receipt Date: 20110217
  Transmission Date: 20110831
  Serious: Yes (Hospitalization)
  Sender: FDA-Public Use
  Company Number: FR-MERCK-1102FRA00118

PATIENT
  Age: 45 Year
  Sex: Male

DRUGS (4)
  1. [THERAPY UNSPECIFIED] [Suspect]
     Indication: ATYPICAL MYCOBACTERIAL INFECTION
     Route: 048
  2. ISENTRESS [Suspect]
     Route: 065
     Dates: start: 20110101, end: 20110101
  3. ISENTRESS [Suspect]
     Indication: HIV INFECTION
     Route: 048
     Dates: end: 20110101
  4. [THERAPY UNSPECIFIED] [Suspect]
     Indication: HIV INFECTION
     Route: 048

REACTIONS (1)
  - DRUG RASH WITH EOSINOPHILIA AND SYSTEMIC SYMPTOMS [None]
